FAERS Safety Report 7214726-8 (Version None)
Quarter: 2011Q1

REPORT INFORMATION
  Report Type: 
  Country: None (occurrence: None)
  Receive Date: 20110107
  Receipt Date: 20091230
  Transmission Date: 20110831
  Serious: No
  Sender: FDA-Public Use
  Company Number: A0837240A

PATIENT
  Age: 63 Year
  Sex: Female

DRUGS (7)
  1. AVANDAMET [Concomitant]
  2. COZAAR [Concomitant]
  3. LOVASTATIN [Concomitant]
  4. LOVAZA [Suspect]
     Dosage: 2CAP TWICE PER DAY
     Route: 048
     Dates: start: 20091201
  5. GLIPIZIDE [Concomitant]
  6. ZETIA [Concomitant]
  7. HYDROCHLOROTHIAZIDE [Concomitant]

REACTIONS (3)
  - DYSGEUSIA [None]
  - DIARRHOEA [None]
  - ERUCTATION [None]
